FAERS Safety Report 4387193-X (Version None)
Quarter: 2004Q2

REPORT INFORMATION
  Report Type: 
  Country: None (occurrence: None)
  Receive Date: 20040630
  Receipt Date: 20040322
  Transmission Date: 20050107
  Serious: No
  Sender: FDA-Public Use
  Company Number: US-GLAXOSMITHKLINE-A0504025A

PATIENT
  Age: 66 Year
  Sex: Female
  Weight: 49.1 kg

DRUGS (8)
  1. ADVAIR HFA [Suspect]
     Indication: ILL-DEFINED DISORDER
     Route: 055
  2. DUONEB [Suspect]
     Indication: DRUG USE FOR UNKNOWN INDICATION
     Route: 055
  3. ECOTRIN [Concomitant]
     Indication: DRUG USE FOR UNKNOWN INDICATION
     Dosage: 81MG PER DAY
     Route: 048
  4. PREMARIN [Concomitant]
     Indication: HORMONE REPLACEMENT THERAPY
     Dosage: .685MG PER DAY
     Route: 048
  5. SYNTHROID [Concomitant]
     Indication: HYPOTHYROIDISM
     Dosage: .075MG PER DAY
  6. OMNICEF [Concomitant]
     Indication: PHARYNGITIS
     Dosage: 300MG TWICE PER DAY
  7. PREVACID [Concomitant]
     Dosage: 30MG TWICE PER DAY
     Route: 048
  8. ALLERGY MEDICATION [Concomitant]
     Dosage: 4MG PER DAY

REACTIONS (3)
  - APHONIA [None]
  - NASOPHARYNGITIS [None]
  - PHARYNGOLARYNGEAL PAIN [None]
